FAERS Safety Report 21925848 (Version 1)
Quarter: 2023Q1

REPORT INFORMATION
  Report Type: Report from Study
  Country: CO (occurrence: CO)
  Receive Date: 20230130
  Receipt Date: 20230130
  Transmission Date: 20230417
  Serious: Yes (Other)
  Sender: FDA-Public Use
  Company Number: CO-ABBVIE-4288022

PATIENT
  Age: 72 Year
  Sex: Female
  Weight: 61 kg

DRUGS (1)
  1. HUMIRA [Suspect]
     Active Substance: ADALIMUMAB
     Indication: Ankylosing spondylitis
     Route: 058
     Dates: start: 20210918, end: 20230107

REACTIONS (3)
  - Cyst [Recovering/Resolving]
  - Onychomycosis [Not Recovered/Not Resolved]
  - Fat tissue increased [Recovering/Resolving]

NARRATIVE: CASE EVENT DATE: 20220701
